FAERS Safety Report 7682925-7 (Version None)
Quarter: 2011Q3

REPORT INFORMATION
  Report Type: 
  Country: None (occurrence: None)
  Receive Date: 20110815
  Receipt Date: 20110811
  Transmission Date: 20111222
  Serious: Yes (Other)
  Sender: FDA-Public Use
  Company Number: US-PFIZER INC-2011186083

PATIENT
  Sex: Female
  Weight: 63.492 kg

DRUGS (2)
  1. CELEBREX [Suspect]
     Indication: ARTHRITIS
     Dosage: UNK, 4X/DAY
     Route: 048
     Dates: start: 20110101, end: 20110101
  2. ASACOL [Concomitant]
     Indication: COLITIS ULCERATIVE
     Dosage: UNK,DAILY

REACTIONS (1)
  - COLITIS ULCERATIVE [None]
